FAERS Safety Report 8986475 (Version 1)
Quarter: 2012Q4

REPORT INFORMATION
  Report Type: Report from Study
  Country: JP (occurrence: JP)
  Receive Date: 20121226
  Receipt Date: 20121226
  Transmission Date: 20130627
  Serious: Yes (Hospitalization, Other)
  Sender: FDA-Public Use
  Company Number: PHHY2012JP012775

PATIENT
  Age: 57 Year
  Sex: Female
  Weight: 37 kg

DRUGS (21)
  1. ALISKIREN [Suspect]
     Indication: HYPERTENSION
     Route: 048
     Dates: start: 20101119
  2. PURSENNID [Concomitant]
     Route: 048
  3. BLOPRESS [Concomitant]
     Indication: HYPERTENSION
     Dosage: 4 mg, UNK
     Route: 048
  4. BLOPRESS [Concomitant]
     Dosage: 8 mg, UNK
  5. BLOPRESS [Concomitant]
     Dosage: 12 mg, UNK
  6. CARDENALIN [Concomitant]
     Indication: HYPERTENSION
     Dosage: 2 mg, UNK
     Route: 048
     Dates: start: 20110205, end: 20110307
  7. CALBLOCK [Concomitant]
     Indication: HYPERTENSION
     Dosage: 4 mg, UNK
     Route: 048
  8. CALBLOCK [Concomitant]
     Dosage: 8 mg, UNK
     Route: 048
  9. OMEPRAL [Concomitant]
     Route: 048
  10. REGPARA [Concomitant]
     Dosage: 25 mg, UNK
     Route: 048
  11. REGPARA [Concomitant]
     Dosage: 100 mg, UNK
     Route: 048
     Dates: start: 20110617
  12. BAYASPIRIN [Concomitant]
     Dosage: 100 mg, UNK
     Route: 048
     Dates: start: 20110602
  13. RENAGEL [Concomitant]
     Dosage: 8.25 g, UNK
     Route: 048
     Dates: start: 20110606
  14. CALTAN [Concomitant]
     Dosage: 1.5 g, UNK
     Route: 048
  15. VEMAS [Concomitant]
     Dosage: 6 DF, UNK
     Route: 048
  16. LENDORMIN [Concomitant]
     Dosage: 0.25 mg, UNK
     Route: 048
  17. OXAROL [Concomitant]
     Dosage: 5 ug, UNK
     Route: 042
  18. SEVELAMER HYDROCHLORIDE [Concomitant]
     Dosage: 7200 mg, UNK
     Route: 048
     Dates: start: 20110607, end: 20110905
  19. SEVELAMER HYDROCHLORIDE [Concomitant]
     Dosage: 2400 mg, UNK
  20. PLETAAL [Concomitant]
     Dosage: 200 mg, UNK
     Route: 048
     Dates: start: 20110603, end: 20110719
  21. PLAVIX [Concomitant]
     Indication: PROPHYLAXIS
     Dosage: 50 mg, UNK
     Route: 048
     Dates: start: 20110823, end: 20111023

REACTIONS (6)
  - Anaemia [Recovering/Resolving]
  - Abdominal wall haemorrhage [Recovering/Resolving]
  - Road traffic accident [Unknown]
  - Blood pressure systolic increased [Unknown]
  - Blood creatinine increased [Unknown]
  - Blood urea increased [Unknown]
